FAERS Safety Report 9353301 (Version 1)
Quarter: 2013Q2

REPORT INFORMATION
  Report Type: Spontaneous
  Country: US (occurrence: None)
  Receive Date: 20130617
  Receipt Date: 20130617
  Transmission Date: 20140414
  Serious: Yes (Hospitalization)
  Sender: FDA-Public Use
  Company Number: None

PATIENT
  Age: 60 Year
  Sex: Male
  Weight: 88.6 kg

DRUGS (2)
  1. BUPRENORPHINE/NALOXONE [Suspect]
     Dosage: 8 MG UNKNOWN SUBLINGUAL
     Route: 060
     Dates: start: 20121228, end: 20121228
  2. METHADONE [Suspect]
     Dosage: 2.5 MG  TID  PO
     Route: 048
     Dates: start: 20030319

REACTIONS (6)
  - Drug withdrawal syndrome [None]
  - Aggression [None]
  - Agitation [None]
  - Abnormal behaviour [None]
  - Delirium [None]
  - Mental status changes [None]
